FAERS Safety Report 25356872 (Version 1)
Quarter: 2025Q2

REPORT INFORMATION
  Report Type: Spontaneous
  Country: MX (occurrence: MX)
  Receive Date: 20250526
  Receipt Date: 20250526
  Transmission Date: 20250717
  Serious: Yes (Hospitalization)
  Sender: NOVO NORDISK
  Company Number: MX-NOVOPROD-1434793

PATIENT
  Age: 21 Year
  Sex: Male
  Weight: 53 kg

DRUGS (3)
  1. NOVOEIGHT [Suspect]
     Active Substance: ANTIHEMOPHILIC FACTOR, HUMAN RECOMBINANT
     Indication: Factor VIII deficiency
     Dosage: 2000 IU, TIW
     Route: 042
  2. NOVOEIGHT [Suspect]
     Active Substance: ANTIHEMOPHILIC FACTOR, HUMAN RECOMBINANT
     Dosage: 2000 IU, QD
     Route: 042
     Dates: start: 20250512, end: 20250512
  3. NOVOEIGHT [Suspect]
     Active Substance: ANTIHEMOPHILIC FACTOR, HUMAN RECOMBINANT
     Dosage: 2000 IU, QD
     Route: 042
     Dates: start: 20250510

REACTIONS (2)
  - Spontaneous haematoma [Recovering/Resolving]
  - Gastritis [Unknown]

NARRATIVE: CASE EVENT DATE: 20240101
